FAERS Safety Report 16771350 (Version 2)
Quarter: 2019Q3

REPORT INFORMATION
  Report Type: Spontaneous
  Country: US (occurrence: US)
  Receive Date: 20190904
  Receipt Date: 20190925
  Transmission Date: 20191005
  Serious: No
  Sender: FDA-Public Use
  Company Number: US-ARRAY-2019-06228

PATIENT

DRUGS (2)
  1. MEKTOVI [Suspect]
     Active Substance: BINIMETINIB
     Indication: COLON CANCER
     Dosage: 45 MG, BID
     Route: 048
     Dates: start: 20190822
  2. BRAFTOVI [Suspect]
     Active Substance: ENCORAFENIB
     Indication: COLON CANCER
     Dosage: 300 MG, QD
     Route: 048
     Dates: start: 20190822

REACTIONS (11)
  - Product use in unapproved indication [Unknown]
  - Dysgeusia [Unknown]
  - Rash [Recovered/Resolved]
  - Thirst [Unknown]
  - Dry skin [Unknown]
  - Constipation [Unknown]
  - Poor quality sleep [Unknown]
  - Pain of skin [Recovered/Resolved]
  - Decreased appetite [Unknown]
  - Acne [Unknown]
  - Fatigue [Unknown]

NARRATIVE: CASE EVENT DATE: 20190826
